FAERS Safety Report 21446718 (Version 2)
Quarter: 2022Q4

REPORT INFORMATION
  Report Type: Spontaneous
  Country: US (occurrence: None)
  Receive Date: 20221012
  Receipt Date: 20221115
  Transmission Date: 20230113
  Serious: No
  Sender: FDA-Public Use
  Company Number: 2022A313302

PATIENT
  Age: 30947 Day
  Sex: Female
  Weight: 98 kg

DRUGS (6)
  1. SYMBICORT [Suspect]
     Active Substance: BUDESONIDE\FORMOTEROL FUMARATE DIHYDRATE
     Indication: Gastrooesophageal reflux disease
     Dosage: 160/4.5 MCG ONE RESPIRATORY INHALATION TWICE A DAY
     Route: 055
     Dates: start: 20220903
  2. SYMBICORT [Suspect]
     Active Substance: BUDESONIDE\FORMOTEROL FUMARATE DIHYDRATE
     Indication: Cough
     Dosage: 160/4.5 MCG ONE RESPIRATORY INHALATION TWICE A DAY
     Route: 055
     Dates: start: 20220903
  3. SYMBICORT [Suspect]
     Active Substance: BUDESONIDE\FORMOTEROL FUMARATE DIHYDRATE
     Indication: Lung disorder
     Dosage: 160/4.5 MCG ONE RESPIRATORY INHALATION TWICE A DAY
     Route: 055
     Dates: start: 20220903
  4. SYMBICORT [Suspect]
     Active Substance: BUDESONIDE\FORMOTEROL FUMARATE DIHYDRATE
     Indication: Gastrooesophageal reflux disease
     Dosage: 160/4.5 MCG ONE RESPIRATORY INHALATION TWICE A DAY
     Route: 055
     Dates: end: 20220824
  5. SYMBICORT [Suspect]
     Active Substance: BUDESONIDE\FORMOTEROL FUMARATE DIHYDRATE
     Indication: Cough
     Dosage: 160/4.5 MCG ONE RESPIRATORY INHALATION TWICE A DAY
     Route: 055
     Dates: end: 20220824
  6. SYMBICORT [Suspect]
     Active Substance: BUDESONIDE\FORMOTEROL FUMARATE DIHYDRATE
     Indication: Lung disorder
     Dosage: 160/4.5 MCG ONE RESPIRATORY INHALATION TWICE A DAY
     Route: 055
     Dates: end: 20220824

REACTIONS (5)
  - Cough [Not Recovered/Not Resolved]
  - Drug dose omission by device [Not Recovered/Not Resolved]
  - Wrong technique in device usage process [Unknown]
  - Device use issue [Unknown]
  - Device delivery system issue [Unknown]

NARRATIVE: CASE EVENT DATE: 20220824
